FAERS Safety Report 14467420 (Version 2)
Quarter: 2018Q1

REPORT INFORMATION
  Report Type: Spontaneous
  Country: US (occurrence: US)
  Receive Date: 20180131
  Receipt Date: 20180213
  Transmission Date: 20180509
  Serious: Yes (Life-Threatening, Hospitalization, Other)
  Sender: FDA-Public Use
  Company Number: US-AUROBINDO-AUR-APL-2018-003548

PATIENT
  Age: 46 Year
  Sex: Female

DRUGS (2)
  1. LOPERAMIDE 2MG [Suspect]
     Active Substance: LOPERAMIDE
     Indication: DRUG WITHDRAWAL SYNDROME
     Dosage: 30 TO 60 TABLETS AT A TIME AT LEAST TWICE A DAY ()
     Route: 065
  2. OXYCODONE [Concomitant]
     Active Substance: OXYCODONE
     Indication: PRODUCT USED FOR UNKNOWN INDICATION
     Dosage: WHEN AVAILABLE FROM AN ILLICIT SOURCE ()
     Route: 065

REACTIONS (5)
  - Drug abuse [Unknown]
  - Ventricular arrhythmia [Unknown]
  - Intentional product misuse [Unknown]
  - Incorrect dose administered [Unknown]
  - Cardiac arrest [Recovered/Resolved]
